FAERS Safety Report 10255507 (Version 3)
Quarter: 2014Q3

REPORT INFORMATION
  Report Type: Spontaneous
  Country: JP (occurrence: JP)
  Receive Date: 20140624
  Receipt Date: 20140904
  Transmission Date: 20150326
  Serious: Yes (Life-Threatening, Hospitalization, Disabling)
  Sender: FDA-Public Use
  Company Number: JP-GE HEALTHCARE MEDICAL DIAGNOSTICS-MSTR-PR-1406S-0013

PATIENT
  Age: 75 Year
  Sex: Male
  Weight: 68.6 kg

DRUGS (5)
  1. METASTRON [Suspect]
     Active Substance: STRONTIUM CHLORIDE SR-89
     Route: 042
     Dates: start: 20130625, end: 20130625
  2. METASTRON [Suspect]
     Active Substance: STRONTIUM CHLORIDE SR-89
     Route: 042
     Dates: start: 20121126, end: 20121126
  3. METASTRON [Suspect]
     Active Substance: STRONTIUM CHLORIDE SR-89
     Indication: METASTATIC PAIN
     Route: 042
     Dates: start: 20110715, end: 20110715
  4. METASTRON [Suspect]
     Active Substance: STRONTIUM CHLORIDE SR-89
     Indication: THERAPEUTIC PROCEDURE
     Route: 042
     Dates: start: 20111220, end: 20111220
  5. METASTRON [Suspect]
     Active Substance: STRONTIUM CHLORIDE SR-89
     Route: 042
     Dates: start: 20131021, end: 20131021

REACTIONS (5)
  - Disseminated intravascular coagulation [Recovering/Resolving]
  - Anaemia [Not Recovered/Not Resolved]
  - Platelet count decreased [Not Recovered/Not Resolved]
  - White blood cell count decreased [Not Recovered/Not Resolved]
  - Sepsis [Not Recovered/Not Resolved]

NARRATIVE: CASE EVENT DATE: 20140127
